FAERS Safety Report 18790926 (Version 3)
Quarter: 2021Q1

REPORT INFORMATION
  Report Type: Report from Study
  Country: ES (occurrence: ES)
  Receive Date: 20210126
  Receipt Date: 20210322
  Transmission Date: 20210419
  Serious: Yes (Death, Hospitalization, Other)
  Sender: FDA-Public Use
  Company Number: ES-EXELIXIS-XL18420036359

PATIENT

DRUGS (5)
  1. CREON [Concomitant]
     Active Substance: PANCRELIPASE AMYLASE\PANCRELIPASE LIPASE\PANCRELIPASE PROTEASE
  2. CODEINE [Concomitant]
     Active Substance: CODEINE
  3. TECENTRIQ [Suspect]
     Active Substance: ATEZOLIZUMAB
     Indication: PANCREATIC NEUROENDOCRINE TUMOUR METASTATIC
     Dosage: 1200 MG
     Dates: start: 20201109, end: 20201228
  4. XL184 [Suspect]
     Active Substance: CABOZANTINIB
     Indication: PANCREATIC NEUROENDOCRINE TUMOUR METASTATIC
     Dosage: 40 MG
     Dates: start: 20201109, end: 20201228
  5. OMEPRAZOLE. [Concomitant]
     Active Substance: OMEPRAZOLE

REACTIONS (4)
  - Hyperthyroidism [Recovered/Resolved]
  - Pancreatitis [Fatal]
  - Abdominal pain [Recovered/Resolved with Sequelae]
  - Abdominal pain [Fatal]

NARRATIVE: CASE EVENT DATE: 20201130
